FAERS Safety Report 10311109 (Version 1)
Quarter: 2014Q3

REPORT INFORMATION
  Report Type: Spontaneous
  Country: US (occurrence: US)
  Receive Date: 20140717
  Receipt Date: 20140717
  Transmission Date: 20150326
  Serious: Yes (Hospitalization, Other)
  Sender: FDA-Public Use
  Company Number: US-ASTRAZENECA-2014SE49707

PATIENT
  Age: 32 Year
  Sex: Female

DRUGS (4)
  1. SEROQUEL [Suspect]
     Active Substance: QUETIAPINE FUMARATE
     Route: 048
  2. ZYPREXA [Concomitant]
     Active Substance: OLANZAPINE
  3. TRILAFON [Concomitant]
     Active Substance: PERPHENAZINE
     Indication: BIPOLAR DISORDER
  4. KLONOPIN [Concomitant]
     Active Substance: CLONAZEPAM
     Indication: ANXIETY

REACTIONS (4)
  - Hypertension [Unknown]
  - Exposure during pregnancy [Unknown]
  - Drug hypersensitivity [Unknown]
  - Abortion spontaneous [Unknown]

NARRATIVE: CASE EVENT DATE: 20130720
